FAERS Safety Report 5262235-8 (Version None)
Quarter: 2007Q1

REPORT INFORMATION
  Report Type: 
  Country: None (occurrence: None)
  Receive Date: 20070312
  Receipt Date: 20070227
  Transmission Date: 20070707
  Serious: Yes (Life-Threatening, Hospitalization, Other)
  Sender: FDA-Public Use
  Company Number: US-NOVOPROD-247372

PATIENT
  Sex: Male
  Weight: 114 kg

DRUGS (34)
  1. NOVOSEVEN [Suspect]
     Indication: CEREBRAL HAEMORRHAGE
     Dosage: 80 UG/KG, SINGLE
     Route: 042
     Dates: start: 20050927, end: 20050927
  2. PHENYTOIN [Concomitant]
     Indication: CONVULSION
     Dosage: 300 MG, QD
     Route: 042
     Dates: start: 20050927
  3. FAMOTIDINE [Concomitant]
     Indication: PROPHYLAXIS
     Dosage: 40 MG, QD
     Route: 042
     Dates: start: 20050927
  4. NICARDIPINE HYDROCHLORIDE [Concomitant]
     Indication: HYPERTENSION
     Dosage: UNK, UNK
     Route: 042
     Dates: start: 20050927
  5. PROPOFOL [Concomitant]
     Indication: PROPHYLAXIS
     Dosage: 2500 MG, QD
     Route: 042
     Dates: start: 20050927
  6. AMLODIPINE [Concomitant]
     Indication: HYPERTENSION
     Dosage: 10 MG, QD
     Dates: start: 20050930
  7. METOPROLOL SUCCINATE [Concomitant]
     Indication: HYPERTENSION
     Dosage: 20 MG, QD
     Route: 042
     Dates: start: 20050929
  8. ATORVASTATIN [Concomitant]
     Indication: HYPERCHOLESTEROLAEMIA
     Dosage: 80 MG, QD
     Dates: start: 20050930
  9. LABETALOL HCL [Concomitant]
     Indication: HYPERTENSION
     Dates: start: 20060927
  10. MAGNESIUM SULFATE [Concomitant]
     Indication: HYPOMAGNESAEMIA
     Dates: start: 20050930
  11. ACETAMINOPHEN [Concomitant]
     Indication: PYREXIA
     Dates: start: 20050927
  12. FUROSEMIDE [Concomitant]
     Indication: CARDIAC FAILURE CONGESTIVE
     Dates: start: 20050929
  13. MAGONATE [Concomitant]
     Indication: HYPOMAGNESAEMIA
     Dates: start: 20050930, end: 20050930
  14. BISACODYL [Concomitant]
     Indication: PROPHYLAXIS
     Dates: start: 20050930
  15. DOCUSATE SODIUM [Concomitant]
     Indication: PROPHYLAXIS
     Dates: start: 20050930
  16. HEPARIN [Concomitant]
     Indication: DEEP VEIN THROMBOSIS
     Dates: start: 20051001
  17. INSULIN [Concomitant]
     Indication: HYPERGLYCAEMIA
     Dosage: SLIDING SCALE
     Dates: start: 20051001, end: 20051003
  18. ENALAPRIL MALEATE [Concomitant]
     Indication: HYPERTENSION
     Dates: start: 20051001
  19. NITROGLYCERIN [Concomitant]
     Indication: HYPERTENSION
     Dosage: DRIP
     Dates: start: 20050929
  20. INSULIN [Concomitant]
     Dosage: DRIP
     Dates: start: 20051003
  21. CALCIUM [Concomitant]
     Indication: HYPOCALCAEMIA
     Dates: start: 20050927
  22. POTASSIUM ACETATE [Concomitant]
     Indication: HYPOKALAEMIA
     Dates: start: 20050927
  23. PHOSPHORUS [Concomitant]
     Indication: HYPOPHOSPHATAEMIA
     Dates: start: 20050927
  24. MEPERIDINE                         /00016301/ [Concomitant]
     Indication: PROPHYLAXIS
     Dates: start: 20051004
  25. EPLERENONE [Concomitant]
     Indication: CARDIAC FAILURE CONGESTIVE
     Dates: start: 20051006
  26. IBUPROFEN [Concomitant]
     Indication: PROPHYLAXIS
     Dates: start: 20051006
  27. MAGNESIUM HYDROXIDE TAB [Concomitant]
     Indication: PROPHYLAXIS
     Dates: start: 20051006
  28. WARFARIN SODIUM [Concomitant]
     Indication: THROMBOSIS
     Dates: start: 20051007, end: 20051012
  29. MORPHINE SULFATE [Concomitant]
     Indication: PROPHYLAXIS
     Dates: start: 20051009
  30. VANCOMYCIN HYDROCHLORIDE [Concomitant]
     Indication: PYREXIA
     Dates: start: 20051005
  31. FOSPHENYTOIN [Concomitant]
     Indication: PROPHYLAXIS
     Dates: start: 20051006
  32. CEFAZOLIN [Concomitant]
     Indication: PYREXIA
     Dates: start: 20051007
  33. CEFEPIME [Concomitant]
     Indication: PYREXIA
     Dates: start: 20051012
  34. FRESH FROZEN PLASMA [Concomitant]
     Indication: PROPHYLAXIS
     Dates: start: 20051013, end: 20051013

REACTIONS (4)
  - ACUTE MYOCARDIAL INFARCTION [None]
  - INTRACARDIAC THROMBUS [None]
  - JUGULAR VEIN THROMBOSIS [None]
  - NEUROLOGICAL SYMPTOM [None]
